FAERS Safety Report 8230868-2 (Version None)
Quarter: 2012Q1

REPORT INFORMATION
  Report Type: 
  Country: None (occurrence: None)
  Receive Date: 20120323
  Receipt Date: 20120313
  Transmission Date: 20120608
  Serious: Yes (Death, Hospitalization, Other)
  Sender: FDA-Public Use
  Company Number: MW-BRISTOL-MYERS SQUIBB COMPANY-16383754

PATIENT
  Age: 38 Year
  Sex: Female
  Weight: 58 kg

DRUGS (5)
  1. ETOPOSIDE [Suspect]
     Indication: KAPOSI'S SARCOMA
     Route: 048
     Dates: start: 20120118, end: 20120124
  2. EFAVIRENZ [Suspect]
     Dates: start: 20120221
  3. ATRIPLA [Suspect]
     Indication: ANTIRETROVIRAL THERAPY
     Dosage: 1 DF = 600/200/300 MG, FREQ: HS-AT BEDTIME
     Route: 048
     Dates: start: 20120117, end: 20120126
  4. LAMIVUDINE (EPIVIR HBV) [Suspect]
     Dates: start: 20120221
  5. STAVUDINE [Suspect]
     Dates: start: 20120221

REACTIONS (12)
  - NEOPLASM MALIGNANT [None]
  - MENINGITIS [None]
  - SEPSIS [None]
  - THROMBOCYTOPENIA [None]
  - DIABETIC NEUROPATHY [None]
  - UROSEPSIS [None]
  - MALARIA [None]
  - GASTROENTERITIS [None]
  - RENAL FAILURE [None]
  - ANAEMIA [None]
  - PULMONARY TUBERCULOSIS [None]
  - OTITIS MEDIA [None]
